FAERS Safety Report 4625686-8 (Version None)
Quarter: 2005Q2

REPORT INFORMATION
  Report Type: 
  Country: None (occurrence: None)
  Receive Date: 20050404
  Receipt Date: 20050323
  Transmission Date: 20051028
  Serious: Yes (Other)
  Sender: FDA-Public Use
  Company Number: US-JNJFOC-20041005268

PATIENT
  Sex: Female
  Weight: 72.58 kg

DRUGS (5)
  1. REMICADE [Suspect]
     Indication: RHEUMATOID ARTHRITIS
     Route: 042
  2. METHOTREXATE [Concomitant]
  3. PLENDIL [Concomitant]
  4. PAXIL [Concomitant]
  5. CELEBREX [Concomitant]

REACTIONS (8)
  - DISORIENTATION [None]
  - HEADACHE [None]
  - MYALGIA [None]
  - NAUSEA [None]
  - PARAESTHESIA [None]
  - UNEVALUABLE EVENT [None]
  - VOMITING [None]
  - WHITE BLOOD CELL COUNT INCREASED [None]
